FAERS Safety Report 10447951 (Version 1)
Quarter: 2014Q3

REPORT INFORMATION
  Report Type: Report from Study
  Country: CA (occurrence: CA)
  Receive Date: 20140911
  Receipt Date: 20140911
  Transmission Date: 20150326
  Serious: Yes (Other)
  Sender: FDA-Public Use
  Company Number: CA-JNJFOC-20140906868

PATIENT
  Sex: Female
  Weight: 58.06 kg

DRUGS (1)
  1. SIMPONI [Suspect]
     Active Substance: GOLIMUMAB
     Indication: PSORIATIC ARTHROPATHY
     Route: 058
     Dates: start: 201209

REACTIONS (7)
  - Infection [Unknown]
  - Arthritis [Unknown]
  - Headache [Unknown]
  - Adverse drug reaction [Unknown]
  - Insomnia [Unknown]
  - Influenza [Unknown]
  - Blood iron decreased [Unknown]

NARRATIVE: CASE EVENT DATE: 2013
